FAERS Safety Report 9726547 (Version 1)
Quarter: 2013Q4

REPORT INFORMATION
  Report Type: Spontaneous
  Country: US (occurrence: US)
  Receive Date: 20131203
  Receipt Date: 20131203
  Transmission Date: 20140711
  Serious: Yes (Hospitalization)
  Sender: FDA-Public Use
  Company Number: US-GLAXOSMITHKLINE-A1051270A

PATIENT
  Age: 45 Year
  Sex: Female

DRUGS (2)
  1. AVODART [Suspect]
     Indication: ALOPECIA
     Route: 048
  2. NO CONCURRENT MEDICATION [Concomitant]

REACTIONS (3)
  - Investigation [Recovered/Resolved]
  - Sensory disturbance [Not Recovered/Not Resolved]
  - Emotional distress [Unknown]
